FAERS Safety Report 5645277-X (Version None)
Quarter: 2008Q1

REPORT INFORMATION
  Report Type: 
  Country: None (occurrence: None)
  Receive Date: 20080229
  Receipt Date: 20080221
  Transmission Date: 20080703
  Serious: Yes (Other)
  Sender: FDA-Public Use
  Company Number: GB-ASTRAZENECA-2008GB00332

PATIENT
  Age: 43 Year
  Sex: Female

DRUGS (7)
  1. ZOMIG [Suspect]
     Indication: MIGRAINE
     Route: 045
     Dates: start: 19990601
  2. TOPAMAX [Suspect]
     Indication: MIGRAINE
     Route: 048
     Dates: start: 20050831, end: 20060111
  3. GAVISCON [Concomitant]
     Route: 048
  4. NICORETTE [Concomitant]
     Route: 062
  5. NICOTINE [Concomitant]
  6. POTASSIUM BICARBONATE [Concomitant]
  7. SODIUM ALGINATE [Concomitant]

REACTIONS (2)
  - DEEP VEIN THROMBOSIS [None]
  - DRUG EXPOSURE DURING PREGNANCY [None]
